FAERS Safety Report 25711271 (Version 1)
Quarter: 2025Q3

REPORT INFORMATION
  Report Type: Spontaneous
  Country: EU (occurrence: EU)
  Receive Date: 20250821
  Receipt Date: 20250821
  Transmission Date: 20251021
  Serious: Yes (Other)
  Sender: MYLAN
  Company Number: None

PATIENT
  Age: 5 Year
  Sex: Male

DRUGS (28)
  1. DEXAMETHASONE [Suspect]
     Active Substance: DEXAMETHASONE
     Indication: General anaesthesia
     Dates: start: 20240326, end: 20240326
  2. DEXAMETHASONE [Suspect]
     Active Substance: DEXAMETHASONE
     Route: 042
     Dates: start: 20240326, end: 20240326
  3. DEXAMETHASONE [Suspect]
     Active Substance: DEXAMETHASONE
     Route: 042
     Dates: start: 20240326, end: 20240326
  4. DEXAMETHASONE [Suspect]
     Active Substance: DEXAMETHASONE
     Dates: start: 20240326, end: 20240326
  5. SUFENTANIL [Suspect]
     Active Substance: SUFENTANIL
     Indication: General anaesthesia
     Dates: start: 20240326, end: 20240326
  6. SUFENTANIL [Suspect]
     Active Substance: SUFENTANIL
     Route: 042
     Dates: start: 20240326, end: 20240326
  7. SUFENTANIL [Suspect]
     Active Substance: SUFENTANIL
     Route: 042
     Dates: start: 20240326, end: 20240326
  8. SUFENTANIL [Suspect]
     Active Substance: SUFENTANIL
     Dates: start: 20240326, end: 20240326
  9. PROPOFOL [Suspect]
     Active Substance: PROPOFOL
     Indication: General anaesthesia
     Dates: start: 20240326, end: 20240326
  10. PROPOFOL [Suspect]
     Active Substance: PROPOFOL
     Route: 042
     Dates: start: 20240326, end: 20240326
  11. PROPOFOL [Suspect]
     Active Substance: PROPOFOL
     Route: 042
     Dates: start: 20240326, end: 20240326
  12. PROPOFOL [Suspect]
     Active Substance: PROPOFOL
     Dates: start: 20240326, end: 20240326
  13. KETAMINE [Suspect]
     Active Substance: KETAMINE
     Indication: General anaesthesia
     Dates: start: 20240326, end: 20240326
  14. KETAMINE [Suspect]
     Active Substance: KETAMINE
     Route: 042
     Dates: start: 20240326, end: 20240326
  15. KETAMINE [Suspect]
     Active Substance: KETAMINE
     Route: 042
     Dates: start: 20240326, end: 20240326
  16. KETAMINE [Suspect]
     Active Substance: KETAMINE
     Dates: start: 20240326, end: 20240326
  17. KETOPROFEN [Suspect]
     Active Substance: KETOPROFEN
     Indication: General anaesthesia
     Dates: start: 20240326, end: 20240326
  18. KETOPROFEN [Suspect]
     Active Substance: KETOPROFEN
     Route: 042
     Dates: start: 20240326, end: 20240326
  19. KETOPROFEN [Suspect]
     Active Substance: KETOPROFEN
     Route: 042
     Dates: start: 20240326, end: 20240326
  20. KETOPROFEN [Suspect]
     Active Substance: KETOPROFEN
     Dates: start: 20240326, end: 20240326
  21. ACETAMINOPHEN [Suspect]
     Active Substance: ACETAMINOPHEN
     Indication: General anaesthesia
     Dates: start: 20240326, end: 20240326
  22. ACETAMINOPHEN [Suspect]
     Active Substance: ACETAMINOPHEN
     Route: 042
     Dates: start: 20240326, end: 20240326
  23. ACETAMINOPHEN [Suspect]
     Active Substance: ACETAMINOPHEN
     Route: 042
     Dates: start: 20240326, end: 20240326
  24. ACETAMINOPHEN [Suspect]
     Active Substance: ACETAMINOPHEN
     Dates: start: 20240326, end: 20240326
  25. CALCIUM CHLORIDE\MAGNESIUM CHLORIDE\MALIC ACID\POTASSIUM CHLORIDE\SODI [Suspect]
     Active Substance: CALCIUM CHLORIDE\MAGNESIUM CHLORIDE\MALIC ACID\POTASSIUM CHLORIDE\SODIUM ACETATE\SODIUM CHLORIDE
     Indication: General anaesthesia
     Dates: start: 20240326, end: 20240326
  26. CALCIUM CHLORIDE\MAGNESIUM CHLORIDE\MALIC ACID\POTASSIUM CHLORIDE\SODI [Suspect]
     Active Substance: CALCIUM CHLORIDE\MAGNESIUM CHLORIDE\MALIC ACID\POTASSIUM CHLORIDE\SODIUM ACETATE\SODIUM CHLORIDE
     Route: 042
     Dates: start: 20240326, end: 20240326
  27. CALCIUM CHLORIDE\MAGNESIUM CHLORIDE\MALIC ACID\POTASSIUM CHLORIDE\SODI [Suspect]
     Active Substance: CALCIUM CHLORIDE\MAGNESIUM CHLORIDE\MALIC ACID\POTASSIUM CHLORIDE\SODIUM ACETATE\SODIUM CHLORIDE
     Route: 042
     Dates: start: 20240326, end: 20240326
  28. CALCIUM CHLORIDE\MAGNESIUM CHLORIDE\MALIC ACID\POTASSIUM CHLORIDE\SODI [Suspect]
     Active Substance: CALCIUM CHLORIDE\MAGNESIUM CHLORIDE\MALIC ACID\POTASSIUM CHLORIDE\SODIUM ACETATE\SODIUM CHLORIDE
     Dates: start: 20240326, end: 20240326

REACTIONS (1)
  - Vernal keratoconjunctivitis [Not Recovered/Not Resolved]

NARRATIVE: CASE EVENT DATE: 20240401
